FAERS Safety Report 9886870 (Version 1)
Quarter: 2014Q1

REPORT INFORMATION
  Report Type: Spontaneous
  Country: US (occurrence: US)
  Receive Date: 20140210
  Receipt Date: 20140210
  Transmission Date: 20141002
  Serious: No
  Sender: FDA-Public Use
  Company Number: US-009507513-1402USA002411

PATIENT
  Age: 62 Year
  Sex: Female

DRUGS (2)
  1. NASONEX [Suspect]
     Dosage: 1 SPRAY IN EACH NOSTRIL ONCE DAILY
     Route: 045
     Dates: start: 2011
  2. ASTEPRO [Concomitant]

REACTIONS (5)
  - Nasal congestion [Not Recovered/Not Resolved]
  - Nasal congestion [Not Recovered/Not Resolved]
  - Headache [Not Recovered/Not Resolved]
  - Drug dose omission [Unknown]
  - Product quality issue [Unknown]
